FAERS Safety Report 5363496-7 (Version None)
Quarter: 2007Q2

REPORT INFORMATION
  Report Type: 
  Country: None (occurrence: None)
  Receive Date: 20070618
  Receipt Date: 20070605
  Transmission Date: 20071010
  Serious: Yes (Life-Threatening, Hospitalization)
  Sender: FDA-Public Use
  Company Number: 16765

PATIENT
  Age: 71 Year
  Sex: Female

DRUGS (3)
  1. CARBOPLATIN [Suspect]
     Indication: OVARIAN NEOPLASM
     Dates: start: 20070411
  2. CARBOPLATIN [Suspect]
  3. TOPOTECAN [Concomitant]

REACTIONS (1)
  - COMA [None]
